FAERS Safety Report 24910516 (Version 6)
Quarter: 2025Q2

REPORT INFORMATION
  Report Type: Spontaneous
  Country: CA (occurrence: CA)
  Receive Date: 20250131
  Receipt Date: 20250530
  Transmission Date: 20250717
  Serious: Yes (Other)
  Sender: PFIZER
  Company Number: CA-PFIZER INC-202400297447

PATIENT
  Age: 37 Year
  Sex: Male

DRUGS (1)
  1. ABRILADA [Suspect]
     Active Substance: ADALIMUMAB-AFZB
     Indication: Crohn^s disease
     Route: 058
     Dates: start: 20240308, end: 202407

REACTIONS (4)
  - Skull fracture [Unknown]
  - Wrist fracture [Unknown]
  - Ligament sprain [Unknown]
  - Condition aggravated [Not Recovered/Not Resolved]
